FAERS Safety Report 5707696-2 (Version None)
Quarter: 2008Q2

REPORT INFORMATION
  Report Type: 
  Country: None (occurrence: None)
  Receive Date: 20080415
  Receipt Date: 20080331
  Transmission Date: 20081010
  Serious: Yes (Hospitalization, Disabling, Other)
  Sender: FDA-Public Use
  Company Number: 0810001

PATIENT
  Age: 7 Year
  Sex: Male

DRUGS (1)
  1. ORFADIN [Suspect]
     Indication: TYROSINAEMIA
     Dosage: 30 MG, ORAL
     Route: 048
     Dates: start: 20020711, end: 20071130

REACTIONS (11)
  - ABNORMAL BEHAVIOUR [None]
  - ANGER [None]
  - APPENDICITIS [None]
  - DEVELOPMENTAL DELAY [None]
  - EDUCATIONAL PROBLEM [None]
  - ENCOPRESIS [None]
  - FAECAL INCONTINENCE [None]
  - LIVER TRANSPLANT [None]
  - NEUROPATHY PERIPHERAL [None]
  - PAIN IN EXTREMITY [None]
  - PORPHYRIA [None]
